FAERS Safety Report 5126662-1 (Version None)
Quarter: 2006Q4

REPORT INFORMATION
  Report Type: 
  Country: None (occurrence: None)
  Receive Date: 20061012
  Receipt Date: 20061012
  Transmission Date: 20070319
  Serious: Yes (Hospitalization)
  Sender: FDA-Public Use
  Company Number: None

PATIENT
  Age: 63 Year
  Sex: Male
  Weight: 68 kg

DRUGS (2)
  1. PENICILLIN VK [Suspect]
     Indication: TOOTH DISORDER
     Dosage: 2G, 500 MG QID ORAL
     Route: 048
     Dates: start: 20060815, end: 20060816
  2. LISINOPRIL [Concomitant]

REACTIONS (1)
  - SWELLING FACE [None]
